FAERS Safety Report 9015642 (Version 2)
Quarter: 2013Q1

REPORT INFORMATION
  Report Type: Spontaneous
  Country: BE (occurrence: None)
  Receive Date: 20130102
  Receipt Date: 20130118
  Transmission Date: 20140127
  Serious: Yes (Hospitalization)
  Sender: FDA-Public Use
  Company Number: ACO_33444_2012

PATIENT
  Age: 46 Year
  Sex: Male

DRUGS (5)
  1. FAMPRIDINE-SR (FAMPRIDINE) TABLET [Suspect]
     Indication: MULTIPLE SCLEROSIS
     Route: 048
     Dates: start: 20120709
  2. COPAXONE (GLATIRAMER ACETATE) [Concomitant]
  3. DAFALGAN CODEINE (CODEINE PHOSPHATE, PARACETAMOL) [Concomitant]
  4. ALEVE (NAPROXEN SODIUM) [Concomitant]
  5. CETRIZINE (CETIRIZINE HYDROCHLORIDE) [Concomitant]

REACTIONS (1)
  - Anaemia [None]
